FAERS Safety Report 9197083 (Version 1)
Quarter: 2013Q1

REPORT INFORMATION
  Report Type: Spontaneous
  Country: US (occurrence: US)
  Receive Date: 20130328
  Receipt Date: 20130328
  Transmission Date: 20140127
  Serious: No
  Sender: FDA-Public Use
  Company Number: US-TEVA-394955USA

PATIENT
  Sex: Female

DRUGS (3)
  1. PROAIR HFA [Suspect]
     Indication: BRONCHOSPASM
  2. ADVAIR [Suspect]
  3. UNSPECIFIED INGREDIENT [Suspect]

REACTIONS (1)
  - Tremor [Unknown]
